FAERS Safety Report 11597031 (Version 1)
Quarter: 2015Q3

REPORT INFORMATION
  Report Type: Spontaneous
  Country: US (occurrence: US)
  Receive Date: 20150916
  Receipt Date: 20150916
  Transmission Date: 20151125
  Serious: No
  Sender: FDA-Public Use
  Company Number: US-ELI_LILLY_AND_COMPANY-US200801006744

PATIENT
  Age: 62 Year
  Sex: Female

DRUGS (2)
  1. FORTEO [Suspect]
     Active Substance: TERIPARATIDE
     Indication: OSTEOPOROSIS
     Dosage: UNK, UNK
     Dates: start: 20070130
  2. FORTEO [Suspect]
     Active Substance: TERIPARATIDE

REACTIONS (8)
  - Blood triglycerides increased [Unknown]
  - Pruritus generalised [Unknown]
  - Peripheral swelling [Unknown]
  - Pain in extremity [Unknown]
  - Urticaria [Unknown]
  - Tremor [Unknown]
  - Pain in extremity [Not Recovered/Not Resolved]
  - Blood cholesterol increased [Unknown]

NARRATIVE: CASE EVENT DATE: 200711
